FAERS Safety Report 10652046 (Version 2)
Quarter: 2019Q2

REPORT INFORMATION
  Report Type: Spontaneous
  Country: US (occurrence: US)
  Receive Date: 20141215
  Receipt Date: 20190621
  Transmission Date: 20190711
  Serious: No
  Sender: FDA-Public Use
  Company Number: US-PFIZER INC-2014341931

PATIENT
  Age: 60 Year
  Sex: Female
  Weight: 59 kg

DRUGS (1)
  1. PRISTIQ EXTENDED-RELEASE [Suspect]
     Active Substance: DESVENLAFAXINE SUCCINATE
     Dosage: UNK

REACTIONS (1)
  - Burning mouth syndrome [Not Recovered/Not Resolved]

NARRATIVE: CASE EVENT DATE: 201403
